FAERS Safety Report 10571632 (Version 1)
Quarter: 2014Q4

REPORT INFORMATION
  Report Type: Spontaneous
  Country: JP (occurrence: JP)
  Receive Date: 20141107
  Receipt Date: 20141107
  Transmission Date: 20150529
  Serious: Yes (Other)
  Sender: FDA-Public Use
  Company Number: JP-MYLANLABS-2014M1008945

PATIENT
  Age: 72 Year
  Sex: Male
  Weight: 61 kg

DRUGS (16)
  1. PROPOFOL. [Suspect]
     Active Substance: PROPOFOL
     Indication: LIP AND/OR ORAL CAVITY CANCER
  2. OXIGEN /00434801/ [Suspect]
     Active Substance: OXYGEN
     Indication: INDUCTION OF ANAESTHESIA
     Dosage: 5L/MIN
     Route: 055
  3. OXIGEN                             /00434801/ [Suspect]
     Active Substance: OXYGEN
     Indication: LIP AND/OR ORAL CAVITY CANCER
  4. PROPOFOL. [Suspect]
     Active Substance: PROPOFOL
     Indication: INDUCTION OF ANAESTHESIA
     Dosage: 110 MG, UNK
     Route: 042
  5. ESLAX [Suspect]
     Active Substance: ROCURONIUM BROMIDE
     Indication: INDUCTION OF ANAESTHESIA
     Dosage: 30 MG, UNK
     Route: 042
  6. SEVOFLURANE ANAESTHETIC LIQUID FOR INHALATION ^MYLAN^ [Suspect]
     Active Substance: SEVOFLURANE
     Indication: INDUCTION OF ANAESTHESIA
     Dosage: 3 %, UNK
     Route: 055
  7. SEVOFLURANE ANAESTHETIC LIQUID FOR INHALATION ^MYLAN^ [Suspect]
     Active Substance: SEVOFLURANE
     Indication: LIP AND/OR ORAL CAVITY CANCER
  8. REMIFENTANIL [Suspect]
     Active Substance: REMIFENTANIL
     Indication: LIP AND/OR ORAL CAVITY CANCER
  9. REMIFENTANIL [Suspect]
     Active Substance: REMIFENTANIL
     Indication: INDUCTION OF ANAESTHESIA
     Dosage: UNK
     Route: 042
  10. ESLAX [Suspect]
     Active Substance: ROCURONIUM BROMIDE
     Indication: LIP AND/OR ORAL CAVITY CANCER
  11. REMIFENTANIL [Suspect]
     Active Substance: REMIFENTANIL
     Indication: MAINTENANCE OF ANAESTHESIA
     Dosage: UNK
     Route: 042
  12. OXIGEN                             /00434801/ [Suspect]
     Active Substance: OXYGEN
     Indication: MAINTENANCE OF ANAESTHESIA
     Dosage: 2L/MIN
     Route: 055
  13. FENTANYL. [Suspect]
     Active Substance: FENTANYL
     Indication: ANALGESIC THERAPY
     Route: 042
  14. ATROPINE [Suspect]
     Active Substance: ATROPINE
     Indication: INDUCTION OF ANAESTHESIA
     Dosage: 0.3 MG, UNK
     Route: 065
  15. SEVOFLURANE ANAESTHETIC LIQUID FOR INHALATION ^MYLAN^ [Suspect]
     Active Substance: SEVOFLURANE
     Indication: MAINTENANCE OF ANAESTHESIA
     Dosage: 2 %, UNK
     Route: 055
  16. ATROPINE [Suspect]
     Active Substance: ATROPINE
     Indication: LIP AND/OR ORAL CAVITY CANCER

REACTIONS (4)
  - Ventricular tachycardia [Recovered/Resolved]
  - Ventricular extrasystoles [None]
  - Prinzmetal angina [Recovered/Resolved]
  - Hypotension [None]
